FAERS Safety Report 8909918 (Version 2)
Quarter: 2012Q4

REPORT INFORMATION
  Report Type: Report from Study
  Country: FR (occurrence: FR)
  Receive Date: 20121115
  Receipt Date: 20121129
  Transmission Date: 20130627
  Serious: No
  Sender: FDA-Public Use
  Company Number: FR-PFIZER INC-2012165184

PATIENT
  Age: 68 Year
  Sex: Female
  Weight: 65 kg

DRUGS (5)
  1. CRIZOTINIB [Suspect]
     Indication: NON-SMALL CELL LUNG CANCER
     Dosage: 250 mg, 2x/day
     Dates: start: 20120511
  2. PREVISCAN [Concomitant]
     Indication: FIBRILLATION ATRIAL
     Dosage: 1x/day
     Route: 048
     Dates: start: 2007, end: 20120802
  3. PRADAXA [Concomitant]
     Indication: ATRIAL FIBRILLATION
     Dosage: 110 mg, 2x/day
     Route: 048
     Dates: start: 20120803
  4. COVERSYL [Concomitant]
     Indication: DILATED CARDIOMYOPATHY
     Dosage: 4 mg, 1x/day
     Route: 048
  5. CARDENSIEL [Concomitant]
     Indication: DILATED CARDIOMYOPATHY
     Dosage: 2.5 mg, 1x/day
     Route: 048

REACTIONS (14)
  - Aspartate aminotransferase increased [Recovered/Resolved]
  - Alanine aminotransferase increased [Recovered/Resolved]
  - Gamma-glutamyltransferase increased [Recovered/Resolved]
  - Leukopenia [Not Recovered/Not Resolved]
  - Platelet count decreased [Not Recovered/Not Resolved]
  - Neutropenia [Unknown]
  - Vision blurred [Recovering/Resolving]
  - Visual impairment [Recovering/Resolving]
  - Cataract [Unknown]
  - Diarrhoea [Recovering/Resolving]
  - Gastrointestinal disorder [Not Recovered/Not Resolved]
  - Oedema peripheral [Unknown]
  - Inflammation [Unknown]
  - Blood sodium increased [Recovered/Resolved]
